FAERS Safety Report 13278800 (Version 1)
Quarter: 2017Q1

REPORT INFORMATION
  Report Type: Report from Study
  Country: None (occurrence: GB)
  Receive Date: 20170228
  Receipt Date: 20170228
  Transmission Date: 20170428
  Serious: Yes (Hospitalization, Other)
  Sender: FDA-Public Use
  Company Number: GB-ABBVIE-17P-167-1888310-00

PATIENT
  Age: 86 Year
  Sex: Female

DRUGS (1)
  1. HUMIRA [Suspect]
     Active Substance: ADALIMUMAB
     Indication: RHEUMATOID ARTHRITIS
     Route: 058
     Dates: start: 20040114

REACTIONS (13)
  - Fatigue [Unknown]
  - Thirst [Unknown]
  - Metastases to liver [Unknown]
  - Malaise [Unknown]
  - Mobility decreased [Unknown]
  - Syncope [Unknown]
  - Weight decreased [Unknown]
  - Lymphadenopathy mediastinal [Unknown]
  - Pleural effusion [Unknown]
  - Polyuria [Unknown]
  - Haemoglobin increased [Unknown]
  - Pathological fracture [Unknown]
  - Lung neoplasm [Unknown]

NARRATIVE: CASE EVENT DATE: 20161129
